FAERS Safety Report 5311932-4 (Version None)
Quarter: 2007Q2

REPORT INFORMATION
  Report Type: 
  Country: None (occurrence: None)
  Receive Date: 20070430
  Receipt Date: 20060404
  Transmission Date: 20071010
  Serious: No
  Sender: FDA-Public Use
  Company Number: 2006UW05919

PATIENT
  Age: 84 Year
  Sex: Female
  Weight: 74.8 kg

DRUGS (8)
  1. NEXIUM [Suspect]
     Indication: GASTROOESOPHAGEAL REFLUX DISEASE
     Route: 048
     Dates: start: 20060101
  2. METOPROLOL SUCCINATE [Concomitant]
  3. ISORBIDE [Concomitant]
  4. MONONITRATE [Concomitant]
  5. ASACOL [Concomitant]
  6. FIBERCON [Concomitant]
  7. VITAMINS [Concomitant]
  8. CALCIUM CHLORIDE [Concomitant]

REACTIONS (1)
  - COLITIS MICROSCOPIC [None]
